FAERS Safety Report 8076592-0 (Version None)
Quarter: 2012Q1

REPORT INFORMATION
  Report Type: 
  Country: None (occurrence: None)
  Receive Date: 20120127
  Receipt Date: 20120116
  Transmission Date: 20120608
  Serious: Yes (Other)
  Sender: FDA-Public Use
  Company Number: US-ELI_LILLY_AND_COMPANY-US201112001801

PATIENT
  Sex: Male
  Weight: 81.814 kg

DRUGS (8)
  1. VITAMINE D VOOR SENIOREN [Concomitant]
     Dosage: 50000 U, WEEKLY (1/W)
  2. METFORMIN HCL [Concomitant]
     Dosage: 500 MG, EACH EVENING
     Route: 048
  3. MICARDIS HCT [Concomitant]
     Dosage: 1 DF, QD
  4. PRAVASTATIN                        /00880402/ [Concomitant]
     Dosage: 20 MG, QD
     Route: 048
  5. FLEXERIL [Concomitant]
     Dosage: 5 MG, QD
     Route: 048
  6. CIALIS [Suspect]
     Indication: ERECTILE DYSFUNCTION
     Dosage: 5 MG, QD
     Route: 048
     Dates: start: 20110223, end: 20111125
  7. FLONASE [Concomitant]
     Dosage: 50 UG, QD
     Route: 045
  8. ASPIRIN [Concomitant]
     Dosage: 81 MG, QD
     Route: 048

REACTIONS (6)
  - PARAESTHESIA [None]
  - MYALGIA [None]
  - HYPOAESTHESIA [None]
  - BLOOD CREATINE PHOSPHOKINASE INCREASED [None]
  - MUSCULAR WEAKNESS [None]
  - RED BLOOD CELL SEDIMENTATION RATE INCREASED [None]
